FAERS Safety Report 18894090 (Version 2)
Quarter: 2021Q1

REPORT INFORMATION
  Report Type: Spontaneous
  Country: US (occurrence: US)
  Receive Date: 20210215
  Receipt Date: 20210302
  Transmission Date: 20210420
  Serious: Yes (Other)
  Sender: FDA-Public Use
  Company Number: US-PFIZER INC-2021099436

PATIENT
  Age: 63 Year
  Sex: Male

DRUGS (1)
  1. ZYVOX [Suspect]
     Active Substance: LINEZOLID
     Dosage: UNK

REACTIONS (6)
  - Acute motor-sensory axonal neuropathy [Not Recovered/Not Resolved]
  - Neuropathy peripheral [Not Recovered/Not Resolved]
  - Glaucoma [Not Recovered/Not Resolved]
  - Gene mutation [Unknown]
  - Sjogren^s syndrome [Unknown]
  - Visual field defect [Unknown]
